FAERS Safety Report 8583207-1 (Version None)
Quarter: 2012Q3

REPORT INFORMATION
  Report Type: 
  Country: None (occurrence: None)
  Receive Date: 20120727
  Receipt Date: 20120713
  Transmission Date: 20120928
  Serious: Yes (Other)
  Sender: FDA-Public Use
  Company Number: 20120457

PATIENT
  Age: 19 Year
  Sex: Female

DRUGS (1)
  1. VENOFER [Suspect]
     Indication: ANAEMIA
     Dosage: 3 DOSES GIVEN OVER 1HR 30 MIN INTRAVENOUS DRIP
     Route: 041
     Dates: start: 20120528, end: 20120528

REACTIONS (5)
  - MUSCULOSKELETAL CHEST PAIN [None]
  - MALAISE [None]
  - SKIN REACTION [None]
  - PARAESTHESIA [None]
  - OEDEMA PERIPHERAL [None]
